FAERS Safety Report 8183116-6 (Version None)
Quarter: 2012Q1

REPORT INFORMATION
  Report Type: 
  Country: None (occurrence: None)
  Receive Date: 20120305
  Receipt Date: 20120229
  Transmission Date: 20120608
  Serious: Yes (Hospitalization)
  Sender: FDA-Public Use
  Company Number: US-AMGEN-USASP2012013495

PATIENT
  Age: 60 Year
  Sex: Female
  Weight: 54.875 kg

DRUGS (10)
  1. PACLITAXEL [Suspect]
     Indication: BREAST CANCER
     Route: 042
  2. RUBEX                              /00008001/ [Concomitant]
     Dosage: UNK
     Dates: start: 20110101, end: 20110901
  3. BEVACIZUMAB [Suspect]
     Indication: BREAST CANCER
     Dosage: BLINDED
     Route: 042
     Dates: start: 20110105, end: 20110909
  4. DOXORUBICIN HCL [Suspect]
     Indication: BREAST CANCER
     Route: 042
  5. ADRIAMYCIN PFS [Concomitant]
     Dosage: UNK
     Dates: start: 20110101, end: 20110901
  6. NEOSAR [Concomitant]
     Dosage: UNK
     Dates: start: 20110101, end: 20110901
  7. NEULASTA [Suspect]
     Indication: BREAST CANCER
     Route: 042
  8. CYCLOPHOSPHAMIDE [Suspect]
     Indication: BREAST CANCER
     Route: 042
  9. TAXOL [Concomitant]
     Dosage: UNK
     Dates: start: 20110101, end: 20110901
  10. CYTOXAN [Concomitant]
     Dosage: UNK

REACTIONS (2)
  - LEFT VENTRICULAR DYSFUNCTION [None]
  - SYNCOPE [None]
